FAERS Safety Report 20545043 (Version 1)
Quarter: 2022Q1

REPORT INFORMATION
  Report Type: Spontaneous
  Country: US (occurrence: US)
  Receive Date: 20220303
  Receipt Date: 20220303
  Transmission Date: 20220424
  Serious: No
  Sender: FDA-Public Use
  Company Number: US-ALLERGAN-2138779US

PATIENT
  Age: 6 Decade
  Sex: Female

DRUGS (1)
  1. RESTASIS [Suspect]
     Active Substance: CYCLOSPORINE
     Indication: Dry eye
     Dosage: ACTUAL:1 DROP IN BOTH EYES ONCE A DAY
     Route: 047
     Dates: start: 2016

REACTIONS (1)
  - Inappropriate schedule of product administration [Unknown]
